FAERS Safety Report 10137256 (Version 1)
Quarter: 2014Q2

REPORT INFORMATION
  Report Type: Spontaneous
  Country: US (occurrence: None)
  Receive Date: 20140428
  Receipt Date: 20140428
  Transmission Date: 20141212
  Serious: Yes (Hospitalization, Disabling, Other)
  Sender: FDA-Public Use
  Company Number: None

PATIENT
  Age: 43 Year
  Sex: Female

DRUGS (1)
  1. NITROFURANTOIN MONOHYDRATE/ MACROCRYSTALLINE [Suspect]
     Indication: URINARY TRACT INFECTION
     Route: 048
     Dates: start: 20130418, end: 20130514

REACTIONS (3)
  - Erythema nodosum [None]
  - Pain in extremity [None]
  - Complex regional pain syndrome [None]
